FAERS Safety Report 24583507 (Version 1)
Quarter: 2024Q4

REPORT INFORMATION
  Report Type: Spontaneous
  Country: US (occurrence: US)
  Receive Date: 20241106
  Receipt Date: 20241106
  Transmission Date: 20250115
  Serious: No
  Sender: ALKEM
  Company Number: US-ALKEM LABORATORIES LIMITED-US-ALKEM-2024-20576

PATIENT
  Age: 72 Year
  Sex: Male

DRUGS (7)
  1. TICAGRELOR [Interacting]
     Active Substance: TICAGRELOR
     Indication: Product used for unknown indication
     Dosage: 180 MILLIGRAM
     Route: 065
  2. PHENYTOIN [Interacting]
     Active Substance: PHENYTOIN
     Indication: Product used for unknown indication
     Dosage: 300 MILLIGRAM, OD (ONCE DAILY)
     Route: 065
  3. PHENYTOIN [Interacting]
     Active Substance: PHENYTOIN
     Dosage: 400 MILLIGRAM, HS (NIGHTLY)
     Route: 065
  4. PHENOBARBITAL [Interacting]
     Active Substance: PHENOBARBITAL
     Indication: Product used for unknown indication
     Dosage: 64.8 MILLIGRAM, OD (ONCE DAILY)
     Route: 065
  5. PHENOBARBITAL [Interacting]
     Active Substance: PHENOBARBITAL
     Dosage: 97.2 MILLIGRAM, HS (NIGHTLY)
     Route: 065
  6. PRASUGREL [Interacting]
     Active Substance: PRASUGREL
     Indication: Product used for unknown indication
     Dosage: 60 MILLIGRAM (LOADING DOSE)
     Route: 065
  7. PRASUGREL [Interacting]
     Active Substance: PRASUGREL
     Dosage: 10 MILLIGRAM, OD (ONCE DAILY)
     Route: 065

REACTIONS (1)
  - Drug interaction [Unknown]
